FAERS Safety Report 6112184-8 (Version None)
Quarter: 2009Q1

REPORT INFORMATION
  Report Type: 
  Country: None (occurrence: None)
  Receive Date: 20090310
  Receipt Date: 20090225
  Transmission Date: 20090719
  Serious: Yes (Hospitalization)
  Sender: FDA-Public Use
  Company Number: DEP_00243_2009

PATIENT
  Age: 65 Year
  Sex: Male

DRUGS (12)
  1. CIPROFLOXACIN [Suspect]
     Indication: CELLULITIS
     Dosage: 500 MG BID
  2. DIURETICS [Concomitant]
  3. FUROSEMIDE [Concomitant]
  4. STEROID ANTIBACTERIALS [Concomitant]
  5. WARFARIN SODIUM [Concomitant]
  6. LISINOPRIL [Concomitant]
  7. METOPROLOL TARTRATE [Concomitant]
  8. SIMVASTATIN [Concomitant]
  9. NIACIN [Concomitant]
  10. FOLIC ACID [Concomitant]
  11. POTASSIUM CHLORIDE [Concomitant]
  12. MULTI-VITAMIN [Concomitant]

REACTIONS (9)
  - ACUTE HEPATIC FAILURE [None]
  - ASCITES [None]
  - CHOLELITHIASIS [None]
  - CHOLESTATIC LIVER INJURY [None]
  - HAEMODIALYSIS [None]
  - HYPERSENSITIVITY [None]
  - PLATELET COUNT DECREASED [None]
  - RENAL FAILURE ACUTE [None]
  - RENAL TUBULAR NECROSIS [None]
